FAERS Safety Report 7946378-3 (Version None)
Quarter: 2011Q4

REPORT INFORMATION
  Report Type: 
  Country: None (occurrence: None)
  Receive Date: 20111129
  Receipt Date: 20111122
  Transmission Date: 20120403
  Serious: Yes (Disabling)
  Sender: FDA-Public Use
  Company Number: US-MERCK-1111USA03242

PATIENT

DRUGS (1)
  1. FOSAMAX [Suspect]
     Route: 048
     Dates: start: 19970101, end: 20110101

REACTIONS (1)
  - FEMUR FRACTURE [None]
